FAERS Safety Report 6931686-5 (Version None)
Quarter: 2010Q3

REPORT INFORMATION
  Report Type: 
  Country: None (occurrence: None)
  Receive Date: 20100819
  Receipt Date: 20100807
  Transmission Date: 20110219
  Serious: Yes (Other)
  Sender: FDA-Public Use
  Company Number: US-PFIZER INC-2010100038

PATIENT
  Sex: Female
  Weight: 78 kg

DRUGS (3)
  1. LYRICA [Suspect]
     Indication: INSOMNIA
     Dosage: 300 MG, 1X/DAY
     Route: 048
     Dates: start: 20100625, end: 20100710
  2. XANAX [Concomitant]
     Indication: INSOMNIA
     Dosage: UNK
  3. TYLENOL PM [Concomitant]
     Indication: INSOMNIA
     Dosage: UNK

REACTIONS (4)
  - DRUG INEFFECTIVE FOR UNAPPROVED INDICATION [None]
  - HYPERSENSITIVITY [None]
  - PRURITUS GENERALISED [None]
  - RASH [None]
